FAERS Safety Report 14964751 (Version 1)
Quarter: 2018Q2

REPORT INFORMATION
  Report Type: Spontaneous
  Country: US (occurrence: US)
  Receive Date: 20180601
  Receipt Date: 20180601
  Transmission Date: 20180711
  Serious: No
  Sender: FDA-Public Use
  Company Number: PHEH2018US020329

PATIENT
  Sex: Female

DRUGS (2)
  1. LOSARTAN SANDOZ [Suspect]
     Active Substance: LOSARTAN
     Dosage: 25 MG, UNK
     Route: 065
  2. LOSARTAN SANDOZ [Suspect]
     Active Substance: LOSARTAN
     Indication: PRODUCT USED FOR UNKNOWN INDICATION
     Dosage: 50 MG, UNK
     Route: 065

REACTIONS (1)
  - Blood pressure decreased [Unknown]
